FAERS Safety Report 5937618-0 (Version None)
Quarter: 2008Q4

REPORT INFORMATION
  Report Type: 
  Country: None (occurrence: None)
  Receive Date: 20081031
  Receipt Date: 20081024
  Transmission Date: 20090506
  Serious: Yes (Other)
  Sender: FDA-Public Use
  Company Number: FR-JNJFOC-20081006853

PATIENT
  Age: 23 Year
  Sex: Male

DRUGS (2)
  1. CONCERTA [Suspect]
     Indication: DRUG USE FOR UNKNOWN INDICATION
     Route: 048
  2. RITALIN [Suspect]
     Indication: DRUG USE FOR UNKNOWN INDICATION
     Dosage: 6 TO 10 TABLETS A DAY
     Route: 048

REACTIONS (2)
  - DEPENDENCE [None]
  - OVERDOSE [None]
